FAERS Safety Report 10194503 (Version 1)
Quarter: 2014Q2

REPORT INFORMATION
  Report Type: Spontaneous
  Country: US (occurrence: US)
  Receive Date: 20140526
  Receipt Date: 20140526
  Transmission Date: 20141212
  Serious: No
  Sender: FDA-Public Use
  Company Number: US-BIOGENIDEC-2014BI043316

PATIENT
  Age: 55 Year
  Sex: Female

DRUGS (8)
  1. TECFIDERA [Suspect]
     Indication: MULTIPLE SCLEROSIS
     Route: 048
     Dates: start: 20140324
  2. BUSPAR [Concomitant]
  3. DEPAKOTE ER [Concomitant]
  4. LEXAPRO [Concomitant]
  5. OMEPRAZOLE [Concomitant]
  6. SIMVASTATIN [Concomitant]
  7. WELLBUTRIN [Concomitant]
  8. TYLENOL GO TABS EXTRA STRENGTH [Concomitant]

REACTIONS (2)
  - Faeces discoloured [Unknown]
  - Dyspepsia [Unknown]
